FAERS Safety Report 10271145 (Version 4)
Quarter: 2014Q3

REPORT INFORMATION
  Report Type: Spontaneous
  Country: BR (occurrence: BR)
  Receive Date: 20140701
  Receipt Date: 20140808
  Transmission Date: 20150326
  Serious: Yes (Other)
  Sender: FDA-Public Use
  Company Number: BR-PFIZER INC-2014174519

PATIENT
  Age: 63 Year
  Sex: Female

DRUGS (7)
  1. LEXOTAN [Concomitant]
     Active Substance: BROMAZEPAM
     Indication: SLEEP DISORDER
     Dosage: UNK
  2. FOLIC ACID. [Concomitant]
     Active Substance: FOLIC ACID
     Dosage: UNK
  3. LYRICA [Suspect]
     Active Substance: PREGABALIN
     Indication: BACK PAIN
  4. DEXALGEN [Concomitant]
     Active Substance: DEXAMETHASONE SODIUM PHOSPHATE\HYDROXOCOBALAMIN\METAMIZOLE SODIUM
     Indication: PAIN IN EXTREMITY
     Dosage: INJECTION THREE APPLICATIONS
  5. CALCIUM [Concomitant]
     Active Substance: CALCIUM
     Indication: OSTEOPOROSIS
     Dosage: UNK
  6. LYRICA [Suspect]
     Active Substance: PREGABALIN
     Indication: PAIN
     Dosage: 75 MG, 2X/DAY (EVERY 12 HOURS)
     Route: 048
  7. DAFORIN [Concomitant]
     Dosage: UNK

REACTIONS (12)
  - Tremor [Unknown]
  - Feeling abnormal [Recovering/Resolving]
  - Speech disorder [Recovering/Resolving]
  - Paraesthesia [Unknown]
  - Hypoaesthesia [Not Recovered/Not Resolved]
  - Electroencephalogram abnormal [Unknown]
  - Blood pressure increased [Unknown]
  - Tongue disorder [Recovering/Resolving]
  - Hangover [Not Recovered/Not Resolved]
  - Amnesia [Recovering/Resolving]
  - Drug ineffective [Unknown]
  - Arrhythmia [Unknown]
